FAERS Safety Report 20114382 (Version 2)
Quarter: 2021Q4

REPORT INFORMATION
  Report Type: Spontaneous
  Country: ES (occurrence: ES)
  Receive Date: 20211125
  Receipt Date: 20211223
  Transmission Date: 20220303
  Serious: Yes (Other)
  Sender: FDA-Public Use
  Company Number: ES-TEVA-2021-ES-1979980

PATIENT
  Age: 70 Year
  Sex: Male

DRUGS (4)
  1. PRAMIPEXOLE [Suspect]
     Active Substance: PRAMIPEXOLE
     Indication: Parkinson^s disease
     Dosage: 2.62 MILLIGRAM DAILY; EXTENDED RELEASE
     Route: 065
  2. SAFINAMIDE [Suspect]
     Active Substance: SAFINAMIDE
     Indication: Parkinson^s disease
     Dosage: 50 MILLIGRAM DAILY;
     Route: 065
  3. RASAGILINE [Concomitant]
     Active Substance: RASAGILINE
     Indication: Parkinson^s disease
     Dosage: 1 MILLIGRAM DAILY;
     Route: 065
  4. ROTIGOTINE [Concomitant]
     Active Substance: ROTIGOTINE
     Indication: Parkinson^s disease
     Dosage: 8 MILLIGRAM DAILY;
     Route: 065

REACTIONS (4)
  - Hallucination, visual [Recovered/Resolved]
  - Anxiety [Unknown]
  - Cognitive disorder [Unknown]
  - Hypersexuality [Recovered/Resolved]
